FAERS Safety Report 7157169-8 (Version None)
Quarter: 2010Q4

REPORT INFORMATION
  Report Type: 
  Country: None (occurrence: None)
  Receive Date: 20101214
  Receipt Date: 20091231
  Transmission Date: 20110411
  Serious: No
  Sender: FDA-Public Use
  Company Number: US-ASTRAZENECA-2009SE32615

PATIENT
  Age: 73 Year
  Sex: Male
  Weight: 99.8 kg

DRUGS (12)
  1. CRESTOR [Suspect]
     Indication: BLOOD CHOLESTEROL INCREASED
     Route: 048
     Dates: start: 20091029, end: 20091122
  2. POTASSIUM CHLORIDE [Concomitant]
  3. FUROSEMIDE [Concomitant]
  4. LEVOTHYROXINE [Concomitant]
  5. ALLOPURINOL [Concomitant]
  6. SPIRONOLACTONE [Concomitant]
  7. GLIMEPIRIDE [Concomitant]
  8. LISINOPRIL [Concomitant]
  9. ASPIRIN [Concomitant]
  10. VITAMIN D3 [Concomitant]
  11. COENZYM Q10 [Concomitant]
  12. VITAMINE C [Concomitant]

REACTIONS (2)
  - ARTHRITIS [None]
  - MYALGIA [None]
